FAERS Safety Report 11969945 (Version 13)
Quarter: 2016Q3

REPORT INFORMATION
  Report Type: Report from Study
  Country: US (occurrence: US)
  Receive Date: 20160128
  Receipt Date: 20160928
  Transmission Date: 20161109
  Serious: Yes (Hospitalization, Other)
  Sender: FDA-Public Use
  Company Number: US-BAYER-2016-014778

PATIENT
  Age: 52 Year
  Sex: Female
  Weight: 98 kg

DRUGS (8)
  1. ADEMPAS [Suspect]
     Active Substance: RIOCIGUAT
     Indication: PULMONARY HYPERTENSION
     Dosage: 1.5 MG, TID
     Route: 048
  2. ADEMPAS [Suspect]
     Active Substance: RIOCIGUAT
     Indication: PULMONARY HYPERTENSION
     Dosage: 2 MG, TID
     Route: 048
  3. ADEMPAS [Suspect]
     Active Substance: RIOCIGUAT
     Indication: PULMONARY HYPERTENSION
     Dosage: 1 MG, TID
     Route: 048
  4. TYVASO [Suspect]
     Active Substance: TREPROSTINIL
     Dosage: UNK
  5. ADEMPAS [Suspect]
     Active Substance: RIOCIGUAT
     Indication: PULMONARY HYPERTENSION
     Dosage: 0.5 MG, TID
     Route: 048
  6. ADEMPAS [Suspect]
     Active Substance: RIOCIGUAT
     Indication: PULMONARY HYPERTENSION
     Dosage: 2 MG, TID
     Route: 048
  7. ADEMPAS [Suspect]
     Active Substance: RIOCIGUAT
     Indication: PULMONARY HYPERTENSION
     Dosage: 2 MG, TID
  8. ADEMPAS [Suspect]
     Active Substance: RIOCIGUAT
     Indication: PULMONARY HYPERTENSION
     Dosage: UNK
     Route: 048
     Dates: start: 20160114

REACTIONS (22)
  - Pneumonia [None]
  - Increased appetite [Unknown]
  - Dry throat [None]
  - Headache [Not Recovered/Not Resolved]
  - Oxygen saturation decreased [Unknown]
  - Internal haemorrhage [None]
  - Constipation [Unknown]
  - Dry mouth [Unknown]
  - Dyskinesia [Unknown]
  - Loss of consciousness [Unknown]
  - Cardiac flutter [Unknown]
  - Vertigo [Unknown]
  - Vision blurred [Unknown]
  - Abdominal pain upper [None]
  - Diarrhoea [Unknown]
  - Headache [Unknown]
  - Oropharyngeal pain [None]
  - Malaise [Unknown]
  - Hospitalisation [None]
  - Cough [Unknown]
  - Headache [None]
  - Ear discomfort [None]

NARRATIVE: CASE EVENT DATE: 201604
